FAERS Safety Report 12891013 (Version 1)
Quarter: 2016Q4

REPORT INFORMATION
  Report Type: Spontaneous
  Country: US (occurrence: US)
  Receive Date: 20161025
  Receipt Date: 20161025
  Transmission Date: 20170207
  Serious: No
  Sender: FDA-Public Use
  Company Number: None

PATIENT
  Age: 39 Year
  Sex: Female

DRUGS (2)
  1. DAPTOMYCIN 500MG MERCK SHARP+DOHME [Suspect]
     Active Substance: DAPTOMYCIN
     Indication: CELLULITIS
     Route: 042
     Dates: start: 20160921, end: 20161018
  2. LEVAQUIN [Suspect]
     Active Substance: LEVOFLOXACIN
     Indication: CELLULITIS
     Route: 042
     Dates: start: 20160921, end: 20160921

REACTIONS (5)
  - Pruritus [None]
  - Headache [None]
  - Throat irritation [None]
  - Dizziness [None]
  - Eye pruritus [None]

NARRATIVE: CASE EVENT DATE: 20160921
